FAERS Safety Report 11324951 (Version 5)
Quarter: 2016Q3

REPORT INFORMATION
  Report Type: Report from Study
  Country: US (occurrence: US)
  Receive Date: 20150730
  Receipt Date: 20160907
  Transmission Date: 20161109
  Serious: Yes (Other)
  Sender: FDA-Public Use
  Company Number: US-EISAI MEDICAL RESEARCH-EC-2014-000165

PATIENT
  Age: 83 Year
  Sex: Male
  Weight: 118.8 kg

DRUGS (21)
  1. CYANOCOBALAMIN. [Concomitant]
     Active Substance: CYANOCOBALAMIN
  2. NITROGLYCERIN. [Concomitant]
     Active Substance: NITROGLYCERIN
  3. IBUPROFEN. [Concomitant]
     Active Substance: IBUPROFEN
  4. DISULFIRAM. [Concomitant]
     Active Substance: DISULFIRAM
  5. FOLIC ACID. [Concomitant]
     Active Substance: FOLIC ACID
  6. PREGABALIN. [Concomitant]
     Active Substance: PREGABALIN
  7. RANITIDINE. [Concomitant]
     Active Substance: RANITIDINE
  8. ASPIRIN. [Concomitant]
     Active Substance: ASPIRIN
  9. ISOSORBIDE DINITRATE. [Concomitant]
     Active Substance: ISOSORBIDE DINITRATE
  10. TAMSULOSIN SR [Concomitant]
  11. LORCASERIN [Suspect]
     Active Substance: LORCASERIN HYDROCHLORIDE
     Indication: WEIGHT CONTROL
     Route: 048
     Dates: start: 20140905, end: 20140910
  12. LIDOCAINE. [Concomitant]
     Active Substance: LIDOCAINE
  13. MELOXICAM. [Concomitant]
     Active Substance: MELOXICAM
  14. ARMODAFINIL. [Concomitant]
     Active Substance: ARMODAFINIL
  15. ERGOCALCIFEROL. [Concomitant]
     Active Substance: ERGOCALCIFEROL
  16. FEXOFENADINE [Concomitant]
     Active Substance: FEXOFENADINE\FEXOFENADINE HYDROCHLORIDE
  17. ATORVASTATIN [Concomitant]
     Active Substance: ATORVASTATIN
  18. METFORMIN SR [Concomitant]
  19. LISINOPRIL. [Concomitant]
     Active Substance: LISINOPRIL
  20. METOPROLOL XL [Concomitant]
     Active Substance: METOPROLOL SUCCINATE
  21. ZINC [Concomitant]
     Active Substance: ZINC\ZINC CHLORIDE

REACTIONS (1)
  - Fatigue [Recovered/Resolved]

NARRATIVE: CASE EVENT DATE: 20140906
